FAERS Safety Report 6719945-2 (Version None)
Quarter: 2010Q2

REPORT INFORMATION
  Report Type: 
  Country: None (occurrence: None)
  Receive Date: 20100511
  Receipt Date: 20100503
  Transmission Date: 20101027
  Serious: Yes (Hospitalization)
  Sender: FDA-Public Use
  Company Number: FR-ELI_LILLY_AND_COMPANY-FR201005000111

PATIENT
  Sex: Female

DRUGS (10)
  1. BYETTA [Suspect]
     Indication: TYPE 2 DIABETES MELLITUS
     Dosage: 5 UG, 2/D
     Route: 058
     Dates: start: 20091216
  2. BYETTA [Suspect]
     Dosage: 10 UG, 2/D
     Route: 065
     Dates: start: 20100117, end: 20100131
  3. MOTILIUM [Concomitant]
     Dosage: UNK, UNKNOWN
     Route: 065
  4. COVERSYL [Concomitant]
     Dosage: UNK, UNKNOWN
     Route: 065
  5. AMLOR [Concomitant]
     Dosage: UNK, UNKNOWN
     Route: 065
  6. ALDACTONE [Concomitant]
     Dosage: UNK, UNKNOWN
     Route: 065
  7. NEBIVOLOL [Concomitant]
     Dosage: UNK, UNKNOWN
     Route: 065
  8. RIVOTRIL [Concomitant]
     Dosage: UNK, UNKNOWN
     Route: 065
  9. DEXERYL /00557601/ [Concomitant]
     Dosage: UNK, UNKNOWN
     Route: 065
  10. INIPOMP [Concomitant]
     Dosage: UNK, UNKNOWN
     Route: 065

REACTIONS (1)
  - PANCREATITIS ACUTE [None]
